FAERS Safety Report 7225062-8 (Version None)
Quarter: 2011Q1

REPORT INFORMATION
  Report Type: 
  Country: None (occurrence: None)
  Receive Date: 20110107
  Receipt Date: 20110107
  Transmission Date: 20110831
  Serious: Yes (Other)
  Sender: FDA-Public Use
  Company Number: None

PATIENT
  Sex: Female
  Weight: 68.0396 kg

DRUGS (2)
  1. OXYCONTIN [Suspect]
     Indication: ANKYLOSING SPONDYLITIS
     Dosage: 10 MG EVERY 8 HOURS PO
     Route: 048
     Dates: start: 20090801, end: 20101120
  2. OXYCONTIN [Suspect]
     Indication: FIBROMYALGIA
     Dosage: 10 MG EVERY 8 HOURS PO
     Route: 048
     Dates: start: 20090801, end: 20101120

REACTIONS (5)
  - ABDOMINAL PAIN UPPER [None]
  - PRODUCT FORMULATION ISSUE [None]
  - GASTROINTESTINAL DISORDER [None]
  - PAIN [None]
  - SUICIDAL IDEATION [None]
